FAERS Safety Report 6150937-0 (Version None)
Quarter: 2009Q2

REPORT INFORMATION
  Report Type: 
  Country: None (occurrence: None)
  Receive Date: 20090409
  Receipt Date: 20090331
  Transmission Date: 20091009
  Serious: Yes (Other)
  Sender: FDA-Public Use
  Company Number: GB-PFIZER INC-2009188170

PATIENT

DRUGS (5)
  1. CAVERJECT DUAL CHAMBER [Suspect]
     Dosage: 40 UG, UNK
     Route: 017
  2. VALPROATE SODIUM [Concomitant]
  3. PRAMIPEXOLE [Concomitant]
  4. DOSULEPIN [Concomitant]
  5. FOLIC ACID [Concomitant]

REACTIONS (2)
  - CIRCUMSTANCE OR INFORMATION CAPABLE OF LEADING TO MEDICATION ERROR [None]
  - DEVICE MALFUNCTION [None]
